FAERS Safety Report 10045396 (Version 1)
Quarter: 2014Q1

REPORT INFORMATION
  Report Type: Spontaneous
  Country: US (occurrence: None)
  Receive Date: 20140306
  Receipt Date: 20140306
  Transmission Date: 20141002
  Serious: Yes (Hospitalization)
  Sender: FDA-Public Use
  Company Number: 163-21880-13064112

PATIENT
  Age: 61 Year
  Sex: Male
  Weight: 71.67 kg

DRUGS (2)
  1. REVLIMID [Suspect]
     Indication: PLASMA CELL MYELOMA
     Dosage: 21 IN 28 DAYS
     Route: 048
     Dates: start: 20130522
  2. BORTEZOMIB (BORTEZOMIB) (UNKNOWN) [Concomitant]

REACTIONS (1)
  - Neutropenia [None]
